FAERS Safety Report 8817048 (Version 1)
Quarter: 2012Q4

REPORT INFORMATION
  Report Type: Spontaneous
  Country: US (occurrence: None)
  Receive Date: 20121003
  Receipt Date: 20121003
  Transmission Date: 20130627
  Serious: No
  Sender: FDA-Public Use
  Company Number: None

PATIENT
  Age: 61 Year
  Sex: Female

DRUGS (1)
  1. ENBREL 50 MG [Suspect]
     Indication: RHEUMATOID ARTHRITIS
     Dosage: 50mg QW SQ
     Dates: start: 20120821

REACTIONS (4)
  - Feeling abnormal [None]
  - Mental disorder [None]
  - Burning sensation [None]
  - Hyperhidrosis [None]
